FAERS Safety Report 10903785 (Version 1)
Quarter: 2015Q1

REPORT INFORMATION
  Report Type: Spontaneous
  Country: US (occurrence: None)
  Receive Date: 20150306
  Receipt Date: 20150306
  Transmission Date: 20150721
  Serious: Yes (Other)
  Sender: FDA-Public Use
  Company Number: TPU2015-00070

PATIENT
  Sex: Female

DRUGS (3)
  1. LIPODERM [Suspect]
     Active Substance: BACLOFEN\CYCLOBENZAPRINE\DICLOFENAC\GABAPENTIN\TETRACAINE
     Indication: PRODUCT USED FOR UNKNOWN INDICATION
     Route: 061
  2. XANAX XR [Suspect]
     Active Substance: ALPRAZOLAM
     Route: 048
  3. NOVOCAINE (PROCAINE HYDROCHLORIDE) [Concomitant]

REACTIONS (2)
  - Loss of consciousness [None]
  - Road traffic accident [None]

NARRATIVE: CASE EVENT DATE: 20150205
